FAERS Safety Report 19459801 (Version 1)
Quarter: 2021Q2

REPORT INFORMATION
  Report Type: Spontaneous
  Country: US (occurrence: US)
  Receive Date: 20210624
  Receipt Date: 20210624
  Transmission Date: 20210717
  Serious: Yes (Hospitalization)
  Sender: FDA-Public Use
  Company Number: US-BRACCO-2020US03752

PATIENT

DRUGS (1)
  1. MULTIHANCE [Suspect]
     Active Substance: GADOBENATE DIMEGLUMINE
     Indication: MAGNETIC RESONANCE IMAGING ABDOMINAL
     Dosage: 13 ML, SINGLE
     Dates: start: 20200607, end: 20200607

REACTIONS (3)
  - Vomiting [Unknown]
  - Dyspnoea [Unknown]
  - Sneezing [Unknown]

NARRATIVE: CASE EVENT DATE: 20200607
